FAERS Safety Report 7048525-7 (Version None)
Quarter: 2010Q4

REPORT INFORMATION
  Report Type: 
  Country: None (occurrence: None)
  Receive Date: 20101008
  Receipt Date: 20100928
  Transmission Date: 20110411
  Serious: Yes (Hospitalization, Other)
  Sender: FDA-Public Use
  Company Number: 714807

PATIENT
  Age: 58 Year
  Sex: Female

DRUGS (5)
  1. PACLITAXEL [Suspect]
     Indication: BREAST CANCER
     Dosage: 150 MG/M^2 EVERY TWO WEEKS,
  2. GEMCITABINE HCL [Suspect]
     Indication: BREAST CANCER
     Dosage: 2,000 MG/M^2 EVERY TWO WEEKS,
  3. ADRIAMYCIN PFS [Concomitant]
  4. (CORTICOSTEROIDS) [Concomitant]
  5. (COLONY STIMULATING FACTORS) [Concomitant]

REACTIONS (9)
  - ACUTE RESPIRATORY FAILURE [None]
  - CYTOMEGALOVIRUS INFECTION [None]
  - MUCOSAL INFLAMMATION [None]
  - NEUTROPENIA [None]
  - NORMOCHROMIC NORMOCYTIC ANAEMIA [None]
  - PNEUMOCYSTIS JIROVECI INFECTION [None]
  - PULMONARY TOXICITY [None]
  - RESPIRATORY TRACT INFECTION [None]
  - VOMITING [None]
